FAERS Safety Report 9867657 (Version 2)
Quarter: 2014Q1

REPORT INFORMATION
  Report Type: Report from Study
  Country: HU (occurrence: HU)
  Receive Date: 20140204
  Receipt Date: 20140204
  Transmission Date: 20141002
  Serious: Yes (Hospitalization, Disabling)
  Sender: FDA-Public Use
  Company Number: HU-SANOFI-AVENTIS-2012SA041325

PATIENT
  Age: 48 Year
  Sex: Male
  Weight: 96 kg

DRUGS (9)
  1. TERIFLUNOMIDE [Suspect]
     Indication: MULTIPLE SCLEROSIS RELAPSE
     Dosage: DOSE:1 UNIT(S)
     Route: 048
     Dates: start: 20110725, end: 20111016
  2. VALSARTAN [Concomitant]
     Route: 048
  3. CARVEDILOL [Concomitant]
     Route: 048
  4. KALDYUM [Concomitant]
     Dosage: DOSE:7 UNIT(S)
     Route: 065
  5. TENOX [Concomitant]
     Route: 048
  6. ATORVASTATIN CALCIUM [Concomitant]
     Dates: start: 20090102
  7. LIPANOR [Concomitant]
     Dates: start: 20090220
  8. ESCITALOPRAM [Concomitant]
     Dates: start: 20091021
  9. MINIPRESS [Concomitant]
     Dates: start: 20100127

REACTIONS (2)
  - Haemorrhagic stroke [Recovered/Resolved]
  - Renal failure acute [Recovered/Resolved]
